FAERS Safety Report 9396804 (Version 2)
Quarter: 2013Q4

REPORT INFORMATION
  Report Type: Spontaneous
  Country: DE (occurrence: DE)
  Receive Date: 20130712
  Receipt Date: 20131108
  Transmission Date: 20140711
  Serious: Yes (Other)
  Sender: FDA-Public Use
  Company Number: DE-BRISTOL-MYERS SQUIBB COMPANY-19082544

PATIENT
  Age: 49 Year
  Sex: Female
  Weight: 52 kg

DRUGS (6)
  1. ELIQUIS [Suspect]
     Indication: ATRIAL FIBRILLATION
     Route: 048
     Dates: start: 20130305, end: 20130620
  2. FLECAINIDE [Concomitant]
     Route: 048
  3. HYDROCHLOROTHIAZIDE [Concomitant]
     Route: 048
  4. EUTHYROX [Concomitant]
     Route: 048
  5. L-THYROXINE [Concomitant]
  6. MAGNESIUM [Concomitant]

REACTIONS (2)
  - Haemorrhagic anaemia [Unknown]
  - Large intestinal ulcer [Unknown]
